FAERS Safety Report 9373927 (Version 1)
Quarter: 2013Q2

REPORT INFORMATION
  Report Type: Spontaneous
  Country: US (occurrence: US)
  Receive Date: 20130628
  Receipt Date: 20130628
  Transmission Date: 20140414
  Serious: No
  Sender: FDA-Public Use
  Company Number: US-009507513-1306USA010163

PATIENT
  Sex: Female

DRUGS (1)
  1. SAPHRIS [Suspect]
     Indication: ANXIETY
     Dosage: 0.5 MG, UNK
     Route: 060

REACTIONS (9)
  - Asthenia [Unknown]
  - Fatigue [Unknown]
  - Somnolence [Unknown]
  - Anxiety [Unknown]
  - Agitation [Unknown]
  - Feeling abnormal [Unknown]
  - Product taste abnormal [Unknown]
  - Off label use [Unknown]
  - Off label use [Unknown]
